FAERS Safety Report 7360534-7 (Version None)
Quarter: 2011Q1

REPORT INFORMATION
  Report Type: 
  Country: None (occurrence: None)
  Receive Date: 20110318
  Receipt Date: 20110310
  Transmission Date: 20110831
  Serious: Yes (Hospitalization, Other)
  Sender: FDA-Public Use
  Company Number: US-PFIZER INC-HQWYE741903AUG04

PATIENT
  Sex: Female
  Weight: 81 kg

DRUGS (9)
  1. PROVERA [Suspect]
     Indication: HORMONE REPLACEMENT THERAPY
     Dosage: 2.5 MG, UNK
     Route: 048
     Dates: start: 19930701, end: 19960901
  2. GLYBURIDE [Concomitant]
     Indication: DIABETES MELLITUS
     Dosage: UNK
     Dates: start: 19890101
  3. METFORMIN [Concomitant]
     Indication: DIABETES MELLITUS
     Dosage: UNK
     Dates: start: 19890101
  4. PROVERA [Suspect]
     Indication: MENOPAUSE
  5. PREMPRO [Suspect]
     Indication: HORMONE REPLACEMENT THERAPY
     Dosage: 0.625MG/2.5MG, UNK
     Route: 048
     Dates: start: 19961001, end: 19980901
  6. PREMPRO [Suspect]
     Indication: MENOPAUSE
  7. PREMARIN [Suspect]
     Indication: MENOPAUSE
  8. PREMARIN [Suspect]
     Indication: HORMONE REPLACEMENT THERAPY
     Dosage: 0.625 MG, UNK
     Route: 048
     Dates: start: 19930701, end: 19960901
  9. PRANDIN [Concomitant]
     Indication: DIABETES MELLITUS
     Dosage: UNK
     Dates: start: 19890101, end: 20040101

REACTIONS (1)
  - BREAST CANCER FEMALE [None]
